FAERS Safety Report 5188290-1 (Version None)
Quarter: 2006Q4

REPORT INFORMATION
  Report Type: 
  Country: None (occurrence: None)
  Receive Date: 20061221
  Receipt Date: 20061220
  Transmission Date: 20070319
  Serious: Yes (Hospitalization)
  Sender: FDA-Public Use
  Company Number: FR-GLAXOSMITHKLINE-B0451335A

PATIENT
  Age: 83 Year
  Sex: Female

DRUGS (5)
  1. AUGMENTIN '125' [Suspect]
     Indication: URINARY TRACT INFECTION
     Dosage: 1G TWICE PER DAY
     Route: 048
     Dates: start: 20061125
  2. FELDENE [Concomitant]
     Dosage: 20MG PER DAY
     Route: 030
     Dates: start: 20061122, end: 20061124
  3. VASTAREL [Concomitant]
     Route: 065
  4. URBANYL [Concomitant]
     Route: 065
  5. DUSPATALIN [Concomitant]
     Route: 065

REACTIONS (2)
  - PRURIGO [None]
  - TOXIC SKIN ERUPTION [None]
